FAERS Safety Report 24632925 (Version 1)
Quarter: 2024Q4

REPORT INFORMATION
  Report Type: Spontaneous
  Country: US (occurrence: US)
  Receive Date: 20241118
  Receipt Date: 20241118
  Transmission Date: 20250114
  Serious: No
  Sender: PERRIGO
  Company Number: US-PERRIGO-24US008028

PATIENT
  Sex: Female
  Weight: 42.177 kg

DRUGS (2)
  1. OPILL [Suspect]
     Active Substance: NORGESTREL
     Indication: Product used for unknown indication
     Dosage: 0.075 MG, QHS
     Route: 048
     Dates: start: 20240725, end: 20240826
  2. MELATONIN [Concomitant]
     Active Substance: MELATONIN
     Indication: Insomnia
     Dosage: UNK
     Route: 065
     Dates: start: 202406

REACTIONS (3)
  - Intermenstrual bleeding [Recovered/Resolved]
  - Vaginal haemorrhage [Unknown]
  - Heavy menstrual bleeding [Recovered/Resolved]

NARRATIVE: CASE EVENT DATE: 20240101
